FAERS Safety Report 23185759 (Version 1)
Quarter: 2023Q4

REPORT INFORMATION
  Report Type: Spontaneous
  Country: US (occurrence: None)
  Receive Date: 20231115
  Receipt Date: 20231115
  Transmission Date: 20240110
  Serious: Yes (Other)
  Sender: FDA-Public Use
  Company Number: None

PATIENT
  Age: 25 Week
  Sex: Female
  Weight: 62.55 kg

DRUGS (1)
  1. ORILISSA [Suspect]
     Active Substance: ELAGOLIX SODIUM
     Indication: Adenomyosis
     Dates: start: 20230720

REACTIONS (9)
  - Heart rate increased [None]
  - Palpitations [None]
  - Arthralgia [None]
  - Headache [None]
  - Alopecia [None]
  - Gingival recession [None]
  - Pelvic pain [None]
  - Nausea [None]
  - Fatigue [None]

NARRATIVE: CASE EVENT DATE: 20230828
